FAERS Safety Report 5886246-4 (Version None)
Quarter: 2008Q3

REPORT INFORMATION
  Report Type: 
  Country: None (occurrence: None)
  Receive Date: 20080912
  Receipt Date: 20080901
  Transmission Date: 20090109
  Serious: Yes (Hospitalization)
  Sender: FDA-Public Use
  Company Number: 100#08#2008-04448

PATIENT
  Age: 45 Year
  Sex: Female

DRUGS (2)
  1. METFORMIN HCL [Suspect]
     Indication: DRUG USE FOR UNKNOWN INDICATION
     Dosage: 500 MG THREE TIMES DAILY
  2. FLUPENTIXOL (FLUPENTIXOL) [Concomitant]

REACTIONS (7)
  - CONTINUOUS HAEMODIAFILTRATION [None]
  - DIARRHOEA [None]
  - FALL [None]
  - HAEMODYNAMIC INSTABILITY [None]
  - LACTIC ACIDOSIS [None]
  - NERVOUS SYSTEM DISORDER [None]
  - RENAL FAILURE [None]
